FAERS Safety Report 5446564-0 (Version None)
Quarter: 2007Q3

REPORT INFORMATION
  Report Type: 
  Country: None (occurrence: None)
  Receive Date: 20070907
  Receipt Date: 20070829
  Transmission Date: 20080115
  Serious: Yes (Other)
  Sender: FDA-Public Use
  Company Number: US-PFIZER INC-2005127099

PATIENT
  Sex: Female
  Weight: 85.3 kg

DRUGS (3)
  1. LIPITOR [Suspect]
     Indication: BLOOD CHOLESTEROL INCREASED
  2. METOPROLOL SUCCINATE [Concomitant]
  3. OMEPRAZOLE [Concomitant]

REACTIONS (6)
  - ARTHRALGIA [None]
  - DIARRHOEA [None]
  - FEELING ABNORMAL [None]
  - GAIT DISTURBANCE [None]
  - HEPATIC PAIN [None]
  - MUSCLE SPASMS [None]
